FAERS Safety Report 4977933-0 (Version None)
Quarter: 2006Q2

REPORT INFORMATION
  Report Type: 
  Country: None (occurrence: None)
  Receive Date: 20060420
  Receipt Date: 20060411
  Transmission Date: 20061013
  Serious: Yes (Other)
  Sender: FDA-Public Use
  Company Number: FR-JNJFOC-20030901405

PATIENT
  Age: 71 Year
  Sex: Male
  Weight: 53 kg

DRUGS (5)
  1. REMICADE [Suspect]
     Indication: RHEUMATOID ARTHRITIS
     Route: 042
  2. METHOTREXATE [Concomitant]
     Indication: RHEUMATOID ARTHRITIS
  3. CORTICOSTEROID NOS [Concomitant]
     Indication: RHEUMATOID ARTHRITIS
  4. CORTANCYL [Concomitant]
  5. NEORAL [Concomitant]

REACTIONS (2)
  - PELVIC FRACTURE [None]
  - TUBERCULOSIS [None]
